FAERS Safety Report 25161178 (Version 1)
Quarter: 2025Q2

REPORT INFORMATION
  Report Type: Spontaneous
  Country: US (occurrence: None)
  Receive Date: 20250403
  Receipt Date: 20250403
  Transmission Date: 20250717
  Serious: Yes (Hospitalization)
  Sender: FDA-CTU
  Company Number: None

PATIENT
  Age: 62 Year
  Sex: Male

DRUGS (1)
  1. NUPLAZID [Suspect]
     Active Substance: PIMAVANSERIN TARTRATE
     Indication: Hallucination, visual
     Dosage: FREQUENCY : DAILY;?
     Route: 048
     Dates: start: 20231228

REACTIONS (3)
  - Fall [None]
  - Head injury [None]
  - Transient ischaemic attack [None]

NARRATIVE: CASE EVENT DATE: 20241019
